FAERS Safety Report 11467984 (Version 1)
Quarter: 2015Q3

REPORT INFORMATION
  Report Type: Spontaneous
  Country: US (occurrence: US)
  Receive Date: 20150908
  Receipt Date: 20150908
  Transmission Date: 20151125
  Serious: No
  Sender: FDA-Public Use
  Company Number: US-PFIZER INC-2015285836

PATIENT
  Age: 84 Year
  Sex: Female

DRUGS (1)
  1. IBRANCE [Suspect]
     Active Substance: PALBOCICLIB
     Dosage: 125 MG, 1X/DAY
     Dates: start: 20150818

REACTIONS (4)
  - Gingival pain [Unknown]
  - Asthenia [Unknown]
  - Mouth ulceration [Unknown]
  - Gingival erythema [Unknown]

NARRATIVE: CASE EVENT DATE: 2015
